FAERS Safety Report 5460339-8 (Version None)
Quarter: 2007Q3

REPORT INFORMATION
  Report Type: 
  Country: None (occurrence: None)
  Receive Date: 20070919
  Receipt Date: 20070803
  Transmission Date: 20080115
  Serious: No
  Sender: FDA-Public Use
  Company Number: US-ASTRAZENECA-2007UW15363

PATIENT
  Age: 51 Year
  Sex: Female
  Weight: 85.3 kg

DRUGS (8)
  1. SEROQUEL [Suspect]
     Indication: BIPOLAR DISORDER
     Route: 048
     Dates: start: 20070201
  2. SEROQUEL [Suspect]
     Indication: SLEEP DISORDER
     Route: 048
     Dates: start: 20070201
  3. TRICOR [Concomitant]
  4. ZETIA [Concomitant]
  5. TOPAMAX [Concomitant]
  6. AMACOR [Concomitant]
  7. GABAPENTIN [Concomitant]
  8. DEPAKOTE [Concomitant]

REACTIONS (19)
  - ABDOMINAL DISTENSION [None]
  - ALOPECIA [None]
  - BLOOD CHOLESTEROL INCREASED [None]
  - BLOOD TRIGLYCERIDES INCREASED [None]
  - BREAST SWELLING [None]
  - CARPAL TUNNEL SYNDROME [None]
  - CHEST PAIN [None]
  - CONSTIPATION [None]
  - ECZEMA [None]
  - ELECTROCARDIOGRAM ABNORMAL [None]
  - HAEMORRHOIDS [None]
  - HEADACHE [None]
  - INCREASED APPETITE [None]
  - MYALGIA [None]
  - NASAL DRYNESS [None]
  - NECK PAIN [None]
  - PARAESTHESIA [None]
  - VISION BLURRED [None]
  - WEIGHT INCREASED [None]
